FAERS Safety Report 12509606 (Version 2)
Quarter: 2016Q3

REPORT INFORMATION
  Report Type: Report from Study
  Country: CA (occurrence: CA)
  Receive Date: 20160629
  Receipt Date: 20160802
  Transmission Date: 20161109
  Serious: Yes (Other)
  Sender: FDA-Public Use
  Company Number: CA-JNJFOC-20160316775

PATIENT
  Age: 48 Year
  Sex: Female
  Weight: 101 kg

DRUGS (25)
  1. REMICADE [Suspect]
     Active Substance: INFLIXIMAB
     Indication: COLITIS ULCERATIVE
     Route: 042
     Dates: start: 20120208, end: 20160405
  2. PREDNISONE. [Concomitant]
     Active Substance: PREDNISONE
     Route: 048
  3. REMICADE [Suspect]
     Active Substance: INFLIXIMAB
     Indication: RHEUMATOID ARTHRITIS
     Route: 042
     Dates: start: 20120208, end: 20160405
  4. PROGESTERONE. [Concomitant]
     Active Substance: PROGESTERONE
     Route: 065
  5. MOTRIN [Concomitant]
     Active Substance: IBUPROFEN
     Route: 065
  6. REMICADE [Suspect]
     Active Substance: INFLIXIMAB
     Indication: COLITIS ULCERATIVE
     Route: 042
     Dates: start: 20160623
  7. COZAAR [Concomitant]
     Active Substance: LOSARTAN POTASSIUM
     Route: 065
  8. PREDNISONE. [Concomitant]
     Active Substance: PREDNISONE
     Route: 048
  9. SINGULAIR [Concomitant]
     Active Substance: MONTELUKAST SODIUM
     Route: 065
  10. REMICADE [Suspect]
     Active Substance: INFLIXIMAB
     Indication: RHEUMATOID ARTHRITIS
     Dosage: NOT LESS THAN 2 HOURS
     Route: 042
     Dates: start: 20160411
  11. VENTOLIN [Concomitant]
     Active Substance: ALBUTEROL SULFATE
     Route: 065
  12. METHOTREXATE. [Concomitant]
     Active Substance: METHOTREXATE
     Route: 065
  13. CALCIUM [Concomitant]
     Active Substance: CALCIUM
     Route: 065
  14. REMICADE [Suspect]
     Active Substance: INFLIXIMAB
     Indication: COLITIS ULCERATIVE
     Dosage: NOT LESS THAN 2 HOURS
     Route: 042
     Dates: start: 20160411
  15. REMICADE [Suspect]
     Active Substance: INFLIXIMAB
     Indication: RHEUMATOID ARTHRITIS
     Route: 042
     Dates: start: 20160623
  16. ESTROGEL [Concomitant]
     Active Substance: ESTRADIOL
     Route: 065
  17. MAXERAN [Concomitant]
     Active Substance: METOCLOPRAMIDE HYDROCHLORIDE
     Route: 065
  18. PULMICORT TURBUHALER [Concomitant]
     Active Substance: BUDESONIDE
     Route: 065
  19. WARFARIN [Concomitant]
     Active Substance: WARFARIN
     Route: 065
  20. FOLIC ACID. [Concomitant]
     Active Substance: FOLIC ACID
     Route: 065
  21. VITAMIN D [Concomitant]
     Active Substance: CHOLECALCIFEROL
     Route: 065
  22. LACTASE ENZYME [Concomitant]
     Route: 065
  23. BUSCOPAN [Concomitant]
     Active Substance: BUTYLSCOPOLAMINE BROMIDE
     Route: 065
  24. HYDROMORPH CONTIN [Concomitant]
     Active Substance: HYDROMORPHONE
     Route: 065
  25. PREVACID [Concomitant]
     Active Substance: LANSOPRAZOLE

REACTIONS (9)
  - General physical health deterioration [Not Recovered/Not Resolved]
  - Off label use [Unknown]
  - Haematochezia [Not Recovered/Not Resolved]
  - Hernia [Not Recovered/Not Resolved]
  - Lower respiratory tract infection [Not Recovered/Not Resolved]
  - Product use issue [Unknown]
  - Frequent bowel movements [Not Recovered/Not Resolved]
  - Rectal spasm [Unknown]
  - Abdominal pain [Unknown]

NARRATIVE: CASE EVENT DATE: 20120208
